FAERS Safety Report 7412046-X (Version None)
Quarter: 2011Q2

REPORT INFORMATION
  Report Type: 
  Country: None (occurrence: None)
  Receive Date: 20110413
  Receipt Date: 20110407
  Transmission Date: 20111010
  Serious: Yes (Hospitalization, Other)
  Sender: FDA-Public Use
  Company Number: DE-BRISTOL-MYERS SQUIBB COMPANY-15555584

PATIENT
  Age: 12 Year
  Sex: Female
  Weight: 40 kg

DRUGS (3)
  1. PREDNISOLONE [Concomitant]
     Indication: PREMEDICATION
  2. FENISTIL [Concomitant]
  3. ORENCIA [Suspect]
     Indication: JUVENILE ARTHRITIS
     Dosage: 8TH INFUSION,14MAR11. RESTARTED WITH PREMEDICATION
     Route: 042
     Dates: start: 20110211

REACTIONS (6)
  - FLUSHING [None]
  - FEELING HOT [None]
  - DIZZINESS [None]
  - HEADACHE [None]
  - THROMBOPHLEBITIS SUPERFICIAL [None]
  - NAUSEA [None]
